FAERS Safety Report 4914149-8 (Version None)
Quarter: 2006Q1

REPORT INFORMATION
  Report Type: 
  Country: None (occurrence: None)
  Receive Date: 20060210
  Receipt Date: 20060201
  Transmission Date: 20060701
  Serious: Yes (Other)
  Sender: FDA-Public Use
  Company Number: A0591905A

PATIENT
  Age: 8 Year
  Sex: Male

DRUGS (2)
  1. ADVAIR DISKUS 100/50 [Suspect]
     Indication: CHRONIC OBSTRUCTIVE PULMONARY DISEASE
     Dosage: 100 MCG/TWICE PER DAY / INHALED
     Route: 055
     Dates: start: 20051220, end: 20051222
  2. METHYLPHENIDATE HCL [Concomitant]

REACTIONS (2)
  - FEAR [None]
  - HALLUCINATION, VISUAL [None]
